FAERS Safety Report 14381840 (Version 1)
Quarter: 2018Q1

REPORT INFORMATION
  Report Type: Spontaneous
  Country: JP (occurrence: JP)
  Receive Date: 20180112
  Receipt Date: 20180112
  Transmission Date: 20180509
  Serious: Yes (Other)
  Sender: FDA-Public Use
  Company Number: JP-PFIZER INC-2018012618

PATIENT
  Age: 79 Year
  Sex: Male
  Weight: 63.5 kg

DRUGS (2)
  1. LEUCOVORIN. [Suspect]
     Active Substance: LEUCOVORIN
     Indication: COLON CANCER
  2. UFT [Suspect]
     Active Substance: TEGAFUR\URACIL
     Indication: COLON CANCER
     Dosage: 300 MG, DAILY

REACTIONS (1)
  - Pancytopenia [Not Recovered/Not Resolved]
